FAERS Safety Report 9657927 (Version 1)
Quarter: 2013Q4

REPORT INFORMATION
  Report Type: Spontaneous
  Country: GR (occurrence: None)
  Receive Date: 20131029
  Receipt Date: 20131029
  Transmission Date: 20140711
  Serious: Yes (Death)
  Sender: FDA-Public Use
  Company Number: NGX_02022_2013

PATIENT
  Sex: Male

DRUGS (1)
  1. QUTENZA (CAPSAICIN) PATCH (179 MG, 179 MG) [Suspect]
     Indication: NEUROPATHY PERIPHERAL
     Dosage: (1 DF, [PATCH, APPLIED ON AN UNSPECIFIED AREA] TOPICAL),
     Route: 061
     Dates: start: 20130720, end: 20130720

REACTIONS (1)
  - Death [None]
